FAERS Safety Report 17995447 (Version 2)
Quarter: 2020Q3

REPORT INFORMATION
  Report Type: Spontaneous
  Country: IT (occurrence: IT)
  Receive Date: 20200708
  Receipt Date: 20200715
  Transmission Date: 20201103
  Serious: Yes (Death, Hospitalization, Other)
  Sender: FDA-Public Use
  Company Number: IT-PFIZER INC-2020253419

PATIENT
  Age: 55 Year
  Sex: Female

DRUGS (2)
  1. PREDNISONE. [Suspect]
     Active Substance: PREDNISONE
     Indication: DERMATOMYOSITIS
     Dosage: 1 MG/KG, DAILY
  2. VORICONAZOLE. [Suspect]
     Active Substance: VORICONAZOLE
     Indication: CEREBRAL ASPERGILLOSIS
     Dosage: 400 MG, DAILY (200 MILLIGRAM, BID )

REACTIONS (6)
  - Cerebral aspergillosis [Fatal]
  - Mucormycosis [Fatal]
  - Infectious pleural effusion [Fatal]
  - Hemiparesis [Fatal]
  - Hypoaesthesia [Fatal]
  - Respiratory failure [Fatal]
